FAERS Safety Report 9918702 (Version 3)
Quarter: 2014Q1

REPORT INFORMATION
  Report Type: Report from Study
  Country: CA (occurrence: CA)
  Receive Date: 20140224
  Receipt Date: 20140304
  Transmission Date: 20141002
  Serious: Yes (Death)
  Sender: FDA-Public Use
  Company Number: CA-ROCHE-1354290

PATIENT
  Age: 48 Year
  Sex: Male

DRUGS (3)
  1. ZELBORAF [Suspect]
     Indication: METASTATIC MALIGNANT MELANOMA
     Route: 048
     Dates: end: 20131111
  2. TYLENOL [Concomitant]
  3. DILAUDID [Concomitant]
     Dosage: AS REQUIRED
     Route: 065

REACTIONS (1)
  - Disease progression [Fatal]
